FAERS Safety Report 6545286-2 (Version None)
Quarter: 2010Q1

REPORT INFORMATION
  Report Type: 
  Country: None (occurrence: None)
  Receive Date: 20100121
  Receipt Date: 20100111
  Transmission Date: 20100710
  Serious: Yes (Hospitalization)
  Sender: FDA-Public Use
  Company Number: US-SANOFI-AVENTIS-2010SA000917

PATIENT
  Age: 50 Year
  Sex: Male

DRUGS (10)
  1. LANTUS [Suspect]
     Dosage: DOSE:30 UNIT(S)
     Route: 058
     Dates: start: 20060101
  2. OPTICLICK [Interacting]
     Dates: start: 20060101
  3. PLAVIX [Interacting]
     Route: 065
     Dates: start: 20090101
  4. METOPROLOL TARTRATE [Interacting]
     Route: 065
     Dates: start: 20091001
  5. CRESTOR [Concomitant]
  6. AVAPRO [Concomitant]
  7. CALCIUM CHANNEL BLOCKERS [Concomitant]
  8. ASPIRIN [Concomitant]
  9. AMLODIPINE [Concomitant]
  10. ACE INHIBITOR NOS [Concomitant]

REACTIONS (4)
  - BLOOD GLUCOSE INCREASED [None]
  - CORONARY ARTERY OCCLUSION [None]
  - DRUG INEFFECTIVE [None]
  - GLYCOSYLATED HAEMOGLOBIN INCREASED [None]
